FAERS Safety Report 6412207-2 (Version None)
Quarter: 2009Q4

REPORT INFORMATION
  Report Type: 
  Country: None (occurrence: None)
  Receive Date: 20091023
  Receipt Date: 20091016
  Transmission Date: 20100525
  Serious: Yes (Hospitalization)
  Sender: FDA-Public Use
  Company Number: B0590120A

PATIENT
  Sex: Male

DRUGS (4)
  1. LAMICTAL [Suspect]
     Indication: EPILEPSY
     Route: 048
     Dates: start: 20090318, end: 20090801
  2. HYDANTOL [Concomitant]
     Indication: EPILEPSY
     Dosage: 200MG PER DAY
     Route: 048
     Dates: start: 20081005
  3. SELENICA R [Concomitant]
     Indication: EPILEPSY
     Dosage: 1200MG PER DAY
     Route: 048
     Dates: start: 20080423
  4. MENDON [Concomitant]
     Indication: EPILEPSY
     Dosage: 2.5MG PER DAY
     Route: 048
     Dates: start: 20081022, end: 20090715

REACTIONS (4)
  - DECREASED APPETITE [None]
  - DEHYDRATION [None]
  - HYPERAMMONAEMIA [None]
  - VOMITING [None]
